FAERS Safety Report 19859944 (Version 2)
Quarter: 2021Q4

REPORT INFORMATION
  Report Type: Spontaneous
  Country: IE (occurrence: IE)
  Receive Date: 20210921
  Receipt Date: 20211020
  Transmission Date: 20220303
  Serious: Yes (Other)
  Sender: FDA-Public Use
  Company Number: IE-LUPIN PHARMACEUTICALS INC.-2021-17733

PATIENT
  Age: 31 Year
  Sex: Female

DRUGS (9)
  1. MORPHINE [Suspect]
     Active Substance: MORPHINE
     Indication: Spinal anaesthesia
     Dosage: 100 MICROGRAM
     Route: 037
  2. POTASSIUM [Suspect]
     Active Substance: POTASSIUM
     Indication: Mineral supplementation
     Dosage: UNK
     Route: 065
  3. INTRALIPID [Suspect]
     Active Substance: EGG PHOSPHOLIPIDS\GLYCERIN\SOYBEAN OIL
     Indication: Product used for unknown indication
     Dosage: UNK OIL EMULSION
     Route: 065
  4. DEXTROSE [Suspect]
     Active Substance: DEXTROSE
     Indication: Product used for unknown indication
     Dosage: UNK
     Route: 065
  5. SODIUM [Suspect]
     Active Substance: SODIUM
     Indication: Supplementation therapy
     Dosage: UNK
     Route: 065
  6. BUPIVACAINE [Suspect]
     Active Substance: BUPIVACAINE
     Indication: Spinal anaesthesia
     Dosage: 8 MILLIGRAM
     Route: 037
  7. FENTANYL [Suspect]
     Active Substance: FENTANYL
     Indication: Spinal anaesthesia
     Dosage: 20 MICROGRAM
     Route: 037
  8. PHENYLEPHRINE [Suspect]
     Active Substance: PHENYLEPHRINE HYDROCHLORIDE
     Indication: Drug therapy
     Dosage: UNK
     Route: 065
  9. LIDOCAINE [Suspect]
     Active Substance: LIDOCAINE
     Indication: Epidural anaesthesia
     Dosage: 100 MILLIGRAM
     Route: 008

REACTIONS (2)
  - Premature delivery [Unknown]
  - Exposure during pregnancy [Unknown]
